FAERS Safety Report 10951691 (Version 2)
Quarter: 2016Q1

REPORT INFORMATION
  Report Type: Report from Study
  Country: EC (occurrence: EC)
  Receive Date: 20150324
  Receipt Date: 20160225
  Transmission Date: 20160525
  Serious: Yes (Hospitalization, Other)
  Sender: FDA-Public Use
  Company Number: PHHY2015EC034902

PATIENT
  Age: 69 Year
  Sex: Male
  Weight: 70 kg

DRUGS (5)
  1. EXJADE [Suspect]
     Active Substance: DEFERASIROX
     Dosage: 5 MG/KG (500 MG), QD
     Route: 048
     Dates: start: 20141029, end: 20150420
  2. EXJADE [Suspect]
     Active Substance: DEFERASIROX
     Dosage: 5 MG/KG (500 MG), TID
     Route: 048
     Dates: start: 20150421, end: 20150708
  3. EXJADE [Suspect]
     Active Substance: DEFERASIROX
     Dosage: 15 MG/KG, (1000 MG) BID
     Route: 048
     Dates: start: 20150709, end: 20150805
  4. EXJADE [Suspect]
     Active Substance: DEFERASIROX
     Indication: SICKLE CELL ANAEMIA
     Dosage: 5 MG/KG (400 MG), QD
     Route: 048
     Dates: start: 20130101
  5. EXJADE [Suspect]
     Active Substance: DEFERASIROX
     Dosage: 5 MG/KG (500 MG), TID
     Route: 048
     Dates: start: 20150820

REACTIONS (4)
  - Impaired healing [Not Recovered/Not Resolved]
  - Nasal neoplasm [Unknown]
  - Ear neoplasm [Unknown]
  - Limb injury [Not Recovered/Not Resolved]

NARRATIVE: CASE EVENT DATE: 20150304
